FAERS Safety Report 7877275-X (Version None)
Quarter: 2011Q4

REPORT INFORMATION
  Report Type: 
  Country: None (occurrence: None)
  Receive Date: 20111031
  Receipt Date: 20111024
  Transmission Date: 20120403
  Serious: Yes (Hospitalization)
  Sender: FDA-Public Use
  Company Number: FI-CEPHALON-2011005533

PATIENT
  Sex: Male

DRUGS (6)
  1. CALCIUM + VITAMIN D [Concomitant]
     Dates: start: 20100101
  2. BENDAMUSTINE HCL [Suspect]
     Route: 042
     Dates: start: 20111019
  3. RITUXIMAB [Suspect]
     Route: 042
     Dates: start: 20111019
  4. LOSARTAN POTASSIUM [Concomitant]
     Dates: start: 19910101
  5. RABEPRAZOLE SODIUM [Concomitant]
     Dates: start: 20040101
  6. AMLODIPINE [Concomitant]
     Dates: start: 19910101

REACTIONS (1)
  - LISTERIOSIS [None]
